FAERS Safety Report 4409796-6 (Version None)
Quarter: 2004Q3

REPORT INFORMATION
  Report Type: 
  Country: None (occurrence: None)
  Receive Date: 20040726
  Receipt Date: 20040709
  Transmission Date: 20050211
  Serious: No
  Sender: FDA-Public Use
  Company Number: A01200403332

PATIENT
  Sex: Male

DRUGS (2)
  1. ELOXATIN [Suspect]
     Dosage: 130 MG/M2 Q3W; A FEW HOURS
  2. CAPECITABINE [Concomitant]

REACTIONS (5)
  - CEREBROVASCULAR ACCIDENT [None]
  - INFUSION RELATED REACTION [None]
  - ISCHAEMIA [None]
  - LABORATORY TEST ABNORMAL [None]
  - PAIN IN EXTREMITY [None]
